FAERS Safety Report 15967992 (Version 1)
Quarter: 2019Q1

REPORT INFORMATION
  Report Type: Spontaneous
  Country: SE (occurrence: SE)
  Receive Date: 20190215
  Receipt Date: 20190215
  Transmission Date: 20190418
  Serious: Yes (Disabling)
  Sender: FDA-Public Use
  Company Number: SE-MYLANLABS-2019M1013805

PATIENT
  Sex: Male

DRUGS (11)
  1. PREDNISOLONE. [Concomitant]
     Active Substance: PREDNISOLONE
     Dosage: UNK
     Dates: start: 20170116
  2. FURIX [Concomitant]
     Active Substance: FUROSEMIDE
     Dosage: UNK
  3. ALLOPURINOL. [Concomitant]
     Active Substance: ALLOPURINOL
     Dosage: UNK
  4. ALVEDON [Concomitant]
     Active Substance: ACETAMINOPHEN
     Dosage: UNK
  5. KALCIPOS D [Concomitant]
     Active Substance: CALCIUM CARBONATE\CHOLECALCIFEROL
     Dosage: UNK
     Dates: start: 20170607, end: 20180801
  6. VALACICLOVIR [Concomitant]
     Active Substance: VALACYCLOVIR HYDROCHLORIDE
     Dosage: UNK
  7. AZOPT [Concomitant]
     Active Substance: BRINZOLAMIDE
     Dosage: UNK
  8. LOSARTAN. [Concomitant]
     Active Substance: LOSARTAN
     Dosage: UNK
  9. ALENDRONAT MYLAN VECKOTABLETT 70 MG TABLETTER [Suspect]
     Active Substance: ALENDRONATE SODIUM
     Indication: OSTEOPOROSIS PROPHYLAXIS
     Dosage: 70 MILLIGRAM, QW(70MG 1/VECKA)
     Route: 048
     Dates: start: 20170607, end: 20180517
  10. LATACOMP [Concomitant]
     Dosage: UNK
  11. ISOPTO-MAXIDEX [Concomitant]
     Dosage: UNK

REACTIONS (2)
  - Periodontitis [Not Recovered/Not Resolved]
  - Tooth injury [Not Recovered/Not Resolved]
